FAERS Safety Report 9302345 (Version 2)
Quarter: 2013Q4

REPORT INFORMATION
  Report Type: Spontaneous
  Country: FR (occurrence: None)
  Receive Date: 20130517
  Receipt Date: 20131022
  Transmission Date: 20140711
  Serious: Yes (Hospitalization, Disabling)
  Sender: FDA-Public Use
  Company Number: 2013-0651

PATIENT
  Age: 65 Year
  Sex: Female
  Weight: 78 kg

DRUGS (16)
  1. CARFILZOMIB [Suspect]
     Indication: PLASMA CELL MYELOMA
     Dosage: 9.7143 MG (34 MG, DAYS 1 -2) IV
     Route: 042
     Dates: start: 20120307, end: 20120308
  2. LENALIDOMIDE (LENALIDOMIDE) (CAPSULE) (LENALIDOMIDE) [Suspect]
     Indication: PLASMA CELL MYELOMA
     Dosage: 18.75 MG ( 25 MG, DAYS 1-21, EVERY 28 DAYS) ORAL
     Route: 048
     Dates: start: 20120307, end: 20120322
  3. DEXAMETHASONE (DEXAMETHASONE) (DEXAMETHASONE) [Suspect]
     Indication: PLASMA CELL MYELOMA
     Dosage: 5.7143 MG (40 MG, DAYS, 1, 8, 15,22, EVERY 28 DAYS
     Dates: start: 20120307, end: 20120827
  4. APROVEL (IRBESARTAN) (IRBESARTAN) [Concomitant]
  5. CLAMOXYL (AMOXICILLIN) [Concomitant]
  6. FUROSEMIDE [Concomitant]
  7. HEXAQUINE (THIAMINE HYDROCHLORIDE) [Concomitant]
  8. INNOHEP (TINZAPARIN SODIUM) [Concomitant]
  9. LASILIX (FUROSEMIDE) [Concomitant]
  10. LOPERAMIDE [Concomitant]
  11. MAGNESIUM B6 (PYRIDOXINE HYDROCHLORIDE) [Concomitant]
  12. UVEDOSE (COLECALCIFEROL) [Concomitant]
  13. ZELITREX (VALACICLOVIR HYDROCHLORIDE) [Concomitant]
  14. ZOMETA (ZOLEDRONIC ACID) [Concomitant]
  15. PANTOPRAZOL (PANTOPRAZOLE SODIUM SESQUIHYDRATE) [Concomitant]
  16. PENTACARINAT (PENTAMIDINE ISETHIONATE) [Concomitant]

REACTIONS (1)
  - Rotator cuff syndrome [None]
